FAERS Safety Report 4659149-0 (Version None)
Quarter: 2005Q2

REPORT INFORMATION
  Report Type: 
  Country: None (occurrence: None)
  Receive Date: 20050511
  Receipt Date: 20050428
  Transmission Date: 20051028
  Serious: Yes (Hospitalization)
  Sender: FDA-Public Use
  Company Number: FR-JNJFOC-20050501799

PATIENT
  Age: 5 Year
  Sex: Female

DRUGS (7)
  1. CONTRAMAL [Suspect]
     Indication: DRUG USE FOR UNKNOWN INDICATION
     Route: 049
  2. SEVORANE [Suspect]
     Indication: DRUG USE FOR UNKNOWN INDICATION
     Route: 055
  3. DIPRIVAN [Concomitant]
     Route: 065
  4. AMODEX [Concomitant]
     Route: 065
  5. DEXAMETHASONE [Concomitant]
     Route: 065
  6. ATROPINE [Concomitant]
     Route: 065
  7. DOLIPRANE [Concomitant]
     Route: 065

REACTIONS (8)
  - ASTHENIA [None]
  - CHEILITIS [None]
  - FACE OEDEMA [None]
  - GLOSSITIS [None]
  - PYREXIA [None]
  - SALIVARY HYPERSECRETION [None]
  - TONGUE DISCOLOURATION [None]
  - TONGUE OEDEMA [None]
